FAERS Safety Report 6743195-7 (Version None)
Quarter: 2010Q2

REPORT INFORMATION
  Report Type: 
  Country: None (occurrence: None)
  Receive Date: 20100527
  Receipt Date: 20100514
  Transmission Date: 20101027
  Serious: Yes (Hospitalization, Other)
  Sender: FDA-Public Use
  Company Number: PHFR2010GB00571

PATIENT
  Sex: Female

DRUGS (4)
  1. CLOZARIL [Suspect]
     Indication: BORDERLINE PERSONALITY DISORDER
     Dosage: UNK
     Route: 048
     Dates: start: 20051109, end: 20090101
  2. CLOZARIL [Suspect]
     Dosage: UNK
     Route: 048
     Dates: start: 20100504, end: 20100507
  3. ZAPONEX [Suspect]
     Dosage: UNK
     Dates: start: 20090101, end: 20100401
  4. NITROFURANTOIN [Suspect]
     Indication: BLADDER OPERATION

REACTIONS (4)
  - BLADDER OPERATION [None]
  - CHEST PAIN [None]
  - HYPOTENSION [None]
  - TACHYCARDIA [None]
